FAERS Safety Report 7405292-2 (Version None)
Quarter: 2011Q2

REPORT INFORMATION
  Report Type: 
  Country: None (occurrence: None)
  Receive Date: 20110411
  Receipt Date: 20110328
  Transmission Date: 20111010
  Serious: Yes (Other)
  Sender: FDA-Public Use
  Company Number: PHHY2011US28371

PATIENT
  Age: 63 Year
  Sex: Female

DRUGS (2)
  1. LETROZOLE [Suspect]
  2. CYCLOPHOSPHAMIDE + 5-FU + METHOTREXATE [Concomitant]

REACTIONS (14)
  - FIBRIN D DIMER INCREASED [None]
  - METASTASES TO LIVER [None]
  - PLASMINOGEN INCREASED [None]
  - ECCHYMOSIS [None]
  - OSTEOLYSIS [None]
  - HAEMORRHAGE [None]
  - METASTASES TO BONE [None]
  - BLOOD FIBRINOGEN DECREASED [None]
  - ANAEMIA [None]
  - NEOPLASM MALIGNANT [None]
  - OSTEOSCLEROSIS [None]
  - INTERVERTEBRAL DISC DISORDER [None]
  - NEPHROLITHIASIS [None]
  - HAEMATURIA [None]
